FAERS Safety Report 24706491 (Version 1)
Quarter: 2024Q4

REPORT INFORMATION
  Report Type: Spontaneous
  Country: CA (occurrence: CA)
  Receive Date: 20241206
  Receipt Date: 20241206
  Transmission Date: 20250115
  Serious: Yes (Death)
  Sender: ROCHE
  Company Number: CA-ROCHE-10000148086

PATIENT
  Age: 44 Year
  Sex: Female
  Weight: 70 kg

DRUGS (34)
  1. ACTEMRA [Suspect]
     Active Substance: TOCILIZUMAB
     Indication: Rheumatoid arthritis
     Route: 042
  2. ACTEMRA [Suspect]
     Active Substance: TOCILIZUMAB
     Route: 042
  3. ACTEMRA [Suspect]
     Active Substance: TOCILIZUMAB
     Route: 042
  4. ACTEMRA [Suspect]
     Active Substance: TOCILIZUMAB
     Route: 042
  5. ACTEMRA [Suspect]
     Active Substance: TOCILIZUMAB
     Indication: Rheumatoid arthritis
     Route: 058
  6. ACTEMRA [Suspect]
     Active Substance: TOCILIZUMAB
     Indication: Rheumatoid arthritis
     Route: 048
  7. MYCOPHENOLATE MOFETIL [Suspect]
     Active Substance: MYCOPHENOLATE MOFETIL
     Indication: Product used for unknown indication
     Route: 065
  8. RITUXIMAB [Suspect]
     Active Substance: RITUXIMAB
     Indication: Rheumatoid arthritis
     Route: 042
  9. ATIVAN [Concomitant]
     Active Substance: LORAZEPAM
  10. CAFFEINE [Concomitant]
     Active Substance: CAFFEINE
  11. CODEINE [Concomitant]
     Active Substance: CODEINE
  12. DESOGESTREL [Concomitant]
     Active Substance: DESOGESTREL
  13. ETHINYL ESTRADIOL [Concomitant]
     Active Substance: ETHINYL ESTRADIOL
  14. DESOXIMETASONE [Concomitant]
     Active Substance: DESOXIMETASONE
  15. ERGOCALCIFEROL [Concomitant]
     Active Substance: ERGOCALCIFEROL
  16. ERYTHROMYCIN [Concomitant]
     Active Substance: ERYTHROMYCIN
  17. GLUCOSAMINE [Concomitant]
     Active Substance: GLUCOSAMINE
  18. IBUPROFEN [Concomitant]
     Active Substance: IBUPROFEN
  19. LANSOPRAZOLE [Concomitant]
     Active Substance: LANSOPRAZOLE
  20. LEVOTHYROXINE SODIUM [Concomitant]
     Active Substance: LEVOTHYROXINE SODIUM
  21. LISINOPRIL [Concomitant]
     Active Substance: LISINOPRIL
     Indication: Rheumatoid arthritis
     Route: 003
  22. LORAZEPAM [Concomitant]
     Active Substance: LORAZEPAM
  23. MELOXICAM [Concomitant]
     Active Substance: MELOXICAM
  24. MORPHINE [Concomitant]
     Active Substance: MORPHINE
  25. PIROXICAM [Concomitant]
     Active Substance: PIROXICAM
  26. PREDNISOLONE [Concomitant]
     Active Substance: PREDNISOLONE
  27. QUETIAPINE [Concomitant]
     Active Substance: QUETIAPINE
  28. RISEDRONATE SODIUM [Concomitant]
     Active Substance: RISEDRONATE SODIUM
  29. SULFASALAZINE [Concomitant]
     Active Substance: SULFASALAZINE
  30. FISH OIL [Concomitant]
     Active Substance: FISH OIL
  31. TYLENOL [Concomitant]
     Active Substance: ACETAMINOPHEN
  32. TYLENOL WITH CODEINE [Concomitant]
     Active Substance: ACETAMINOPHEN\CODEINE PHOSPHATE
  33. ZESTRIL [Concomitant]
     Active Substance: LISINOPRIL
  34. ZOPICLONE [Concomitant]
     Active Substance: ZOPICLONE

REACTIONS (28)
  - Abdominal pain upper [Fatal]
  - Anti-cyclic citrullinated peptide antibody [Fatal]
  - Breast cancer stage III [Fatal]
  - Bursitis [Fatal]
  - C-reactive protein abnormal [Fatal]
  - Confusional state [Fatal]
  - Diarrhoea [Fatal]
  - Dizziness [Fatal]
  - Exposure during pregnancy [Fatal]
  - General physical health deterioration [Fatal]
  - Insomnia [Fatal]
  - Joint range of motion decreased [Fatal]
  - Live birth [Fatal]
  - Memory impairment [Fatal]
  - Mobility decreased [Fatal]
  - Nausea [Fatal]
  - Oedema [Fatal]
  - Oedema peripheral [Fatal]
  - Pain in extremity [Fatal]
  - Pneumonia [Fatal]
  - Pregnancy [Fatal]
  - Pulmonary fibrosis [Fatal]
  - Rheumatoid factor positive [Fatal]
  - Road traffic accident [Fatal]
  - Sleep disorder [Fatal]
  - Thrombocytopenia [Fatal]
  - Vomiting [Fatal]
  - Wheezing [Fatal]
